FAERS Safety Report 6508131-7 (Version None)
Quarter: 2009Q4

REPORT INFORMATION
  Report Type: 
  Country: None (occurrence: None)
  Receive Date: 20091221
  Receipt Date: 20091217
  Transmission Date: 20100525
  Serious: Yes (Death, Hospitalization, Other)
  Sender: FDA-Public Use
  Company Number: PHHY2009ES56418

PATIENT
  Age: 66 Year
  Sex: Female

DRUGS (4)
  1. BASILIXIMAB [Suspect]
     Indication: RENAL TRANSPLANT
     Dosage: UNK
     Dates: start: 20060601
  2. TACROLIMUS [Suspect]
     Indication: RENAL TRANSPLANT
     Dosage: UNK
     Dates: start: 20060601
  3. MYCOPHENOLATE MOFETIL [Suspect]
     Indication: RENAL TRANSPLANT
     Dosage: UNK
     Dates: start: 20060601
  4. PREDNISONE [Suspect]
     Indication: RENAL TRANSPLANT

REACTIONS (25)
  - ASCITES [None]
  - DIARRHOEA [None]
  - DOUGLAS' ABSCESS [None]
  - DYSPNOEA [None]
  - FLUID RETENTION [None]
  - HYPOVOLAEMIC SHOCK [None]
  - LEUKOCYTOSIS [None]
  - LYMPHOCELE [None]
  - LYMPHOCELE MARSUPIALISATION [None]
  - METASTASES TO BLADDER [None]
  - METASTASES TO GASTROINTESTINAL TRACT [None]
  - METASTASES TO PERITONEUM [None]
  - NEPHRECTASIA [None]
  - NEPHRECTOMY [None]
  - OBSTRUCTIVE UROPATHY [None]
  - OEDEMA [None]
  - OLIGURIA [None]
  - ORTHOPNOEA [None]
  - PERITONITIS [None]
  - PYREXIA [None]
  - RENAL CELL CARCINOMA [None]
  - RENAL FAILURE ACUTE [None]
  - SUPERINFECTION [None]
  - URETERAL STENT INSERTION [None]
  - URETERIC STENOSIS [None]
